FAERS Safety Report 4451581-3 (Version None)
Quarter: 2004Q3

REPORT INFORMATION
  Report Type: 
  Country: None (occurrence: None)
  Receive Date: 20040915
  Receipt Date: 20040908
  Transmission Date: 20050211
  Serious: Yes (Other)
  Sender: FDA-Public Use
  Company Number: 200420478BWH

PATIENT
  Sex: 0

DRUGS (2)
  1. DTIC-DOME [Suspect]
     Indication: MALIGNANT MELANOMA
     Dosage: INTRAVENOUS
     Route: 042
  2. TAMOXIFEN CITRATE [Concomitant]

REACTIONS (1)
  - MYELOMA RECURRENCE [None]
